FAERS Safety Report 5576073-X (Version None)
Quarter: 2007Q4

REPORT INFORMATION
  Report Type: 
  Country: None (occurrence: None)
  Receive Date: 20071130
  Receipt Date: 20070808
  Transmission Date: 20080405
  Serious: No
  Sender: FDA-Public Use
  Company Number: US200708002041

PATIENT
  Age: 66 Year
  Sex: Female

DRUGS (3)
  1. BYETTA [Suspect]
     Indication: TYPE 2 DIABETES MELLITUS
     Dosage: 5 UG, 2/D, SUBCUTANEOUS
     Route: 058
     Dates: start: 20070629, end: 20070801
  2. GLIPIZIDE [Concomitant]
  3. AMBIEN [Concomitant]

REACTIONS (6)
  - BLADDER PAIN [None]
  - BURNING SENSATION [None]
  - HEADACHE [None]
  - RENAL PAIN [None]
  - VISION BLURRED [None]
  - WEIGHT DECREASED [None]
